FAERS Safety Report 9908056 (Version 1)
Quarter: 2014Q1

REPORT INFORMATION
  Report Type: Spontaneous
  Country: US (occurrence: None)
  Receive Date: 20140212
  Receipt Date: 20140212
  Transmission Date: 20141002
  Serious: No
  Sender: FDA-Public Use
  Company Number: None

PATIENT
  Age: 40 Year
  Sex: Male
  Weight: 68.04 kg

DRUGS (1)
  1. FLONASE [Suspect]
     Indication: RHINITIS
     Dosage: 1 OR 2 SPRAYS EACH NOSTRIL DAILY
     Route: 055

REACTIONS (5)
  - Anxiety [None]
  - Aggression [None]
  - Palpitations [None]
  - Insomnia [None]
  - Hyperhidrosis [None]
